FAERS Safety Report 8447599-6 (Version None)
Quarter: 2012Q2

REPORT INFORMATION
  Report Type: 
  Country: None (occurrence: None)
  Receive Date: 20120619
  Receipt Date: 20120614
  Transmission Date: 20120825
  Serious: Yes (Life-Threatening, Hospitalization, Other)
  Sender: FDA-Public Use
  Company Number: GB-PFIZER INC-2012073411

PATIENT
  Age: 59 Year
  Sex: Male
  Weight: 82.5 kg

DRUGS (9)
  1. ATORVASTATIN CALCIUM [Concomitant]
     Dosage: 40 MG, 1X/DAY
     Route: 048
  2. NEURONTIN [Concomitant]
     Dosage: 900 MG, 3X/DAY
     Route: 048
  3. BACLOFEN [Concomitant]
     Dosage: 10 MG, 1X/DAY
     Route: 048
  4. ALENDRONATE SODIUM [Concomitant]
     Dosage: 70 MG, WEEKLY
     Route: 048
  5. CARBAMAZEPINE [Concomitant]
     Dosage: 100 MG, 3X/DAY
     Route: 048
  6. ACETAMINOPHEN WITH PROPOXYPHENE HCL TAB [Concomitant]
     Dosage: 1-2 TABLETS FOUR TIMES DAILY
     Route: 048
  7. TOVIAZ [Suspect]
     Indication: BLADDER DISORDER
     Dosage: 4 MG, 1X/DAY
     Dates: start: 20120310, end: 20120310
  8. OXYBUTYNIN [Concomitant]
  9. ACETYLSALICYLIC ACID [Concomitant]
     Dosage: 75 MG, 1X/DAY
     Route: 048

REACTIONS (7)
  - PULSE ABSENT [None]
  - SYNCOPE [None]
  - LOSS OF CONSCIOUSNESS [None]
  - EYE DISORDER [None]
  - DIZZINESS [None]
  - BLOOD PRESSURE IMMEASURABLE [None]
  - RESPIRATORY ARREST [None]
